FAERS Safety Report 9325732 (Version 2)
Quarter: 2015Q2

REPORT INFORMATION
  Report Type: Report from Study
  Country: GB (occurrence: GB)
  Receive Date: 20130604
  Receipt Date: 20150518
  Transmission Date: 20150821
  Serious: Yes (Hospitalization)
  Sender: FDA-Public Use
  Company Number: GB-ROCHE-1228663

PATIENT
  Age: 72 Year
  Sex: Male
  Weight: 99.8 kg

DRUGS (4)
  1. CAPECITABINE. [Suspect]
     Active Substance: CAPECITABINE
     Indication: ADENOCARCINOMA
     Dosage: MOST RECENT DOSE:17/FEB/2013
     Route: 048
     Dates: start: 20130212
  2. EPIRUBICIN [Suspect]
     Active Substance: EPIRUBICIN
     Indication: ADENOCARCINOMA
     Dosage: MOST RECENT DOSE:12/FEB/2013
     Route: 042
     Dates: start: 20130212
  3. BEVACIZUMAB [Suspect]
     Active Substance: BEVACIZUMAB
     Indication: ADENOCARCINOMA
     Dosage: MOST RECENT DOSE:12/FEB/2013
     Route: 042
     Dates: start: 20130212
  4. CISPLATIN. [Suspect]
     Active Substance: CISPLATIN
     Indication: ADENOCARCINOMA
     Dosage: MOST RECENT DOSE:12/FEB/2013
     Route: 042
     Dates: start: 20130212

REACTIONS (3)
  - Abdominal pain upper [Not Recovered/Not Resolved]
  - Gastritis [Recovered/Resolved]
  - Dysphagia [Not Recovered/Not Resolved]

NARRATIVE: CASE EVENT DATE: 20130215
